FAERS Safety Report 11662293 (Version 3)
Quarter: 2016Q4

REPORT INFORMATION
  Report Type: Report from Study
  Country: CA (occurrence: CA)
  Receive Date: 20151027
  Receipt Date: 20161118
  Transmission Date: 20170206
  Serious: Yes (Other)
  Sender: FDA-Public Use
  Company Number: CA-TAKEDA-2015TUS014644

PATIENT
  Age: 64 Year
  Sex: Female

DRUGS (7)
  1. PANTOLOC [Suspect]
     Active Substance: PANTOPRAZOLE SODIUM
     Indication: PRODUCT USED FOR UNKNOWN INDICATION
     Dosage: 80 MG, UNK
     Route: 065
  2. CARBOCAL [Concomitant]
     Active Substance: CALCIUM CARBONATE
     Dosage: UNK
  3. VEDOLIZUMAB [Suspect]
     Active Substance: VEDOLIZUMAB
     Indication: CROHN^S DISEASE
     Dosage: 300 MG, UNK
     Route: 042
     Dates: start: 20150713
  4. VITALUX                            /00322001/ [Concomitant]
     Dosage: UNK
  5. VEDOLIZUMAB [Suspect]
     Active Substance: VEDOLIZUMAB
     Dosage: 300 MG, Q4WEEKS
     Route: 042
     Dates: start: 20160506
  6. IRON [Concomitant]
     Active Substance: IRON
     Dosage: UNK
  7. VITAMIN B12 [Concomitant]
     Active Substance: CYANOCOBALAMIN
     Dosage: UNK

REACTIONS (13)
  - Eye irritation [Unknown]
  - Restlessness [Unknown]
  - Angina pectoris [Unknown]
  - Off label use [Unknown]
  - Cataract [Unknown]
  - Weight fluctuation [Not Recovered/Not Resolved]
  - Erythema [Unknown]
  - Off label use [Unknown]
  - Limb discomfort [Unknown]
  - Ocular discomfort [Unknown]
  - Vision blurred [Unknown]
  - Iodine allergy [Unknown]
  - Fatigue [Unknown]

NARRATIVE: CASE EVENT DATE: 2015
